FAERS Safety Report 7659933-5 (Version None)
Quarter: 2011Q3

REPORT INFORMATION
  Report Type: 
  Country: None (occurrence: None)
  Receive Date: 20110805
  Receipt Date: 20110728
  Transmission Date: 20111222
  Serious: Yes (Other)
  Sender: FDA-Public Use
  Company Number: FR-CEPHALON-2011004019

PATIENT
  Sex: Female

DRUGS (3)
  1. LEVOTHYROXINE SODIUM [Concomitant]
  2. VALSARTAN  AND HYDROCHLOROTHIAZIDE [Suspect]
  3. MODAFINIL [Suspect]
     Indication: HYPERSOMNIA
     Route: 048
     Dates: start: 20000901

REACTIONS (6)
  - DRUG INTERACTION [None]
  - DRUG INEFFECTIVE FOR UNAPPROVED INDICATION [None]
  - THERAPEUTIC RESPONSE UNEXPECTED [None]
  - KNEE OPERATION [None]
  - GAMMA-GLUTAMYLTRANSFERASE INCREASED [None]
  - HYPERTENSION [None]
